FAERS Safety Report 6507834-8 (Version None)
Quarter: 2009Q4

REPORT INFORMATION
  Report Type: 
  Country: None (occurrence: None)
  Receive Date: 20091221
  Receipt Date: 20091216
  Transmission Date: 20100525
  Serious: Yes (Life-Threatening, Hospitalization, Other)
  Sender: FDA-Public Use
  Company Number: A0808773A

PATIENT
  Age: 44 Year
  Sex: Female
  Weight: 74.5 kg

DRUGS (10)
  1. TYKERB [Suspect]
     Indication: BREAST CANCER
     Dosage: 1250MG PER DAY
     Route: 048
     Dates: start: 20090914
  2. XELODA [Concomitant]
     Indication: BREAST CANCER
     Route: 048
     Dates: start: 20090714
  3. IXEMPRA KIT [Concomitant]
     Indication: BREAST CANCER
     Route: 042
     Dates: start: 20090714
  4. DEXAMETHASONE TAB [Concomitant]
     Dosage: 4MG PER DAY
     Route: 048
     Dates: start: 20090622
  5. PHENYTOIN [Concomitant]
     Indication: CONVULSION PROPHYLAXIS
     Dosage: 100MG THREE TIMES PER DAY
     Route: 048
     Dates: start: 20090622
  6. ZOFRAN [Concomitant]
     Indication: NAUSEA
     Dosage: 8MG FOUR TIMES PER DAY
     Route: 048
     Dates: start: 20090622
  7. MARINOL [Concomitant]
  8. RADIATION THERAPY [Concomitant]
  9. HEPARIN [Concomitant]
  10. HERCEPTIN [Concomitant]

REACTIONS (7)
  - BLOOD PRESSURE DECREASED [None]
  - DEEP VEIN THROMBOSIS [None]
  - JOINT SWELLING [None]
  - OEDEMA PERIPHERAL [None]
  - PULMONARY EMBOLISM [None]
  - VENOUS OCCLUSION [None]
  - WEIGHT INCREASED [None]
